FAERS Safety Report 15600046 (Version 1)
Quarter: 2018Q4

REPORT INFORMATION
  Report Type: Report from Study
  Country: None (occurrence: US)
  Receive Date: 20181109
  Receipt Date: 20181109
  Transmission Date: 20190205
  Serious: Yes (Other)
  Sender: FDA-Public Use
  Company Number: US-ABBVIE-18K-163-2544308-00

PATIENT
  Sex: Male

DRUGS (1)
  1. HUMIRA [Suspect]
     Active Substance: ADALIMUMAB
     Indication: CROHN^S DISEASE
     Route: 058

REACTIONS (7)
  - Anxiety [Recovering/Resolving]
  - Dizziness [Recovering/Resolving]
  - Gastric pH decreased [Recovering/Resolving]
  - Seizure [Recovering/Resolving]
  - Eructation [Recovering/Resolving]
  - Stress [Recovering/Resolving]
  - Vertigo [Recovering/Resolving]
